FAERS Safety Report 17764742 (Version 1)
Quarter: 2020Q2

REPORT INFORMATION
  Report Type: Spontaneous
  Country: HR (occurrence: HR)
  Receive Date: 20200511
  Receipt Date: 20200511
  Transmission Date: 20200714
  Serious: Yes (Hospitalization, Other)
  Sender: FDA-Public Use
  Company Number: HR-ROCHE-2598193

PATIENT
  Age: 70 Year
  Sex: Female
  Weight: 77 kg

DRUGS (1)
  1. XELODA [Suspect]
     Active Substance: CAPECITABINE
     Indication: COLORECTAL CANCER
     Dosage: 4000 MG DAILY (4 X 500 IN THE MORNING AND THE EVENING), TWO WEEKS ON, ONE WEEK OFF
     Route: 048
     Dates: start: 2019

REACTIONS (2)
  - Diarrhoea [Unknown]
  - Deep vein thrombosis [Unknown]
